FAERS Safety Report 6717806-6 (Version None)
Quarter: 2010Q2

REPORT INFORMATION
  Report Type: 
  Country: None (occurrence: None)
  Receive Date: 20100503
  Receipt Date: 20100426
  Transmission Date: 20101027
  Serious: Yes (Death, Hospitalization, Disabling)
  Sender: FDA-Public Use
  Company Number: 7002805

PATIENT
  Age: 53 Year
  Sex: Female
  Weight: 54 kg

DRUGS (6)
  1. REBIF [Suspect]
     Indication: MULTIPLE SCLEROSIS
     Dates: end: 20070601
  2. BACLOFEN [Concomitant]
  3. PAXIL [Concomitant]
  4. TEGRETOL [Concomitant]
  5. MORPHINE [Concomitant]
  6. UNSPECIFIED MEDICATION (ALL OTHER THERAPEUTIC PRODUCTS) [Concomitant]

REACTIONS (2)
  - MESOTHELIOMA [None]
  - MULTIPLE SCLEROSIS RELAPSE [None]
